FAERS Safety Report 15424790 (Version 1)
Quarter: 2018Q3

REPORT INFORMATION
  Report Type: Report from Study
  Country: PE (occurrence: PE)
  Receive Date: 20180925
  Receipt Date: 20180925
  Transmission Date: 20181010
  Serious: Yes (Death)
  Sender: FDA-Public Use
  Company Number: PE-INCYTE CORPORATION-2018IN009738

PATIENT

DRUGS (1)
  1. JAKAVI [Suspect]
     Active Substance: RUXOLITINIB
     Indication: MYELOFIBROSIS
     Dosage: 20 MG, BID (20 MG IN THE MORNING AND 20 MG AT NIGHT)
     Route: 048

REACTIONS (1)
  - Myelofibrosis [Fatal]
